FAERS Safety Report 4605922-4 (Version None)
Quarter: 2005Q2

REPORT INFORMATION
  Report Type: 
  Country: None (occurrence: None)
  Receive Date: 20050303
  Receipt Date: 20041118
  Transmission Date: 20051028
  Serious: No
  Sender: FDA-Public Use
  Company Number: 200421039BWH

PATIENT
  Age: 55 Year
  Sex: Male
  Weight: 83.4619 kg

DRUGS (5)
  1. LEVITRA [Suspect]
     Indication: ERECTILE DYSFUNCTION
     Dosage: 20 MG, TOTAL DAILY, ORAL;  20 MG, TOTAL DAILY, ORAL
     Route: 048
     Dates: start: 20040701
  2. LEVITRA [Suspect]
     Indication: ERECTILE DYSFUNCTION
     Dosage: 20 MG, TOTAL DAILY, ORAL;  20 MG, TOTAL DAILY, ORAL
     Route: 048
     Dates: start: 20040901
  3. NORVASC [Concomitant]
  4. DIOVAN [Concomitant]
  5. VIAGRA [Concomitant]

REACTIONS (2)
  - HEADACHE [None]
  - NASAL CONGESTION [None]
